FAERS Safety Report 4456834-0 (Version None)
Quarter: 2004Q3

REPORT INFORMATION
  Report Type: 
  Country: None (occurrence: None)
  Receive Date: 20040921
  Receipt Date: 20040903
  Transmission Date: 20050211
  Serious: Yes (Hospitalization)
  Sender: FDA-Public Use
  Company Number: DSA_24958_2004

PATIENT
  Age: 83 Year
  Sex: Female

DRUGS (9)
  1. ENALAPRIL MALEATE AND HYDROCHLOROTHIAZIDE [Suspect]
     Dosage: 1 TAB BID PO
     Route: 048
     Dates: end: 20040601
  2. ENALAPRIL MALEATE AND HYDROCHLOROTHIAZIDE [Suspect]
     Dosage: 1 TAB QD PO
     Route: 048
  3. CONCOR [Concomitant]
  4. ASPIRIN [Concomitant]
  5. LORAMET [Concomitant]
  6. BECOZYME FORTE [Concomitant]
  7. SUPRADYN [Concomitant]
  8. LEXOTANIL [Concomitant]
  9. CALCIMAGON-D3 [Concomitant]

REACTIONS (7)
  - DISEASE RECURRENCE [None]
  - DIZZINESS [None]
  - DRUG ABUSER [None]
  - HYPERTENSION [None]
  - HYPONATRAEMIA [None]
  - SELF-MEDICATION [None]
  - URINE OSMOLARITY DECREASED [None]
